FAERS Safety Report 7352582-8 (Version None)
Quarter: 2011Q1

REPORT INFORMATION
  Report Type: 
  Country: None (occurrence: None)
  Receive Date: 20110304
  Receipt Date: 20110216
  Transmission Date: 20110831
  Serious: Yes (Hospitalization, Other)
  Sender: FDA-Public Use
  Company Number: 2009S1002577

PATIENT
  Age: 64 Year
  Sex: Female
  Weight: 63.9572 kg

DRUGS (5)
  1. CHONDROITIN W/ GLUCOSAMINE /02118501/ [Concomitant]
  2. COLESTIPOL HYDROCHLORIDE [Concomitant]
  3. DIOVAN [Concomitant]
  4. PHOSPHOSODA FLAVOR NOT SPECIFIED [Suspect]
     Indication: COLONOSCOPY
     Dosage: 45 ML; X1; PO
     Route: 048
     Dates: start: 20080916, end: 20080917
  5. FOSAMAX [Concomitant]

REACTIONS (11)
  - TOXICITY TO VARIOUS AGENTS [None]
  - HYPOPHAGIA [None]
  - HYPERNATRAEMIA [None]
  - ANAEMIA [None]
  - DIARRHOEA [None]
  - DEHYDRATION [None]
  - MYALGIA [None]
  - FLUID INTAKE REDUCED [None]
  - RENAL FAILURE ACUTE [None]
  - HYPERPHOSPHATAEMIA [None]
  - FATIGUE [None]
